FAERS Safety Report 6335005-7 (Version None)
Quarter: 2009Q3

REPORT INFORMATION
  Report Type: 
  Country: None (occurrence: None)
  Receive Date: 20090831
  Receipt Date: 20090818
  Transmission Date: 20100115
  Serious: Yes (Hospitalization, Other)
  Sender: FDA-Public Use
  Company Number: US-PFIZER INC-2009256359

PATIENT
  Age: 53 Year
  Sex: Female

DRUGS (7)
  1. CHANTIX [Suspect]
     Indication: SMOKING CESSATION THERAPY
     Dosage: UNK
  2. MILNACIPRAN HYDROCHLORIDE [Suspect]
     Indication: FIBROMYALGIA
     Dosage: 12.5 MG, 1X/DAY
     Route: 048
     Dates: start: 20090615, end: 20090616
  3. AMITRIPTYLINE [Suspect]
     Indication: INSOMNIA
     Dosage: 50 MG, 1X/DAY
     Route: 048
  4. CLONAZEPAM [Suspect]
     Indication: ANXIETY
     Dosage: 2 MG, 2X/DAY
     Route: 048
  5. WELLBUTRIN [Suspect]
     Indication: DEPRESSION
     Dosage: 300 MG, 1X/DAY
     Route: 048
  6. PERCOCET [Concomitant]
     Indication: PAIN
     Dosage: UNK
  7. NORVASC [Concomitant]
     Indication: HYPERTENSION
     Dosage: 7.5 MG, 1X/DAY
     Route: 048

REACTIONS (1)
  - SEROTONIN SYNDROME [None]
